FAERS Safety Report 8192727 (Version 4)
Quarter: 2012Q4

REPORT INFORMATION
  Report Type: 
  Country: US (occurrence: US)
  Receive Date: 20111021
  Receipt Date: 20121125
  Transmission Date: 20130627
  Serious: Yes (Hospitalization, Other)
  Sender: FDA-Public Use
  Company Number: US-BAYER-2011-093545

PATIENT
  Age: 21 Year
  Sex: Female
  Weight: 54.42 kg

DRUGS (23)
  1. YASMIN [Suspect]
     Indication: OVARIAN CYST
     Route: 048
     Dates: start: 200601, end: 201008
  2. YASMIN [Suspect]
     Indication: ACNE
  3. YASMIN [Suspect]
     Indication: DYSMENORRHEA
  4. OCELLA [Suspect]
     Indication: OVARIAN CYST
     Route: 048
     Dates: start: 200601, end: 201008
  5. IBUPROFEN [Concomitant]
     Indication: PAIN RELIEF
     Dosage: 2 daily as needed
     Dates: start: 2009
  6. ALEVE [Concomitant]
     Indication: PAIN RELIEF
     Dosage: 2 daily as needed
     Dates: start: 2009
  7. ADDERALL [Concomitant]
     Indication: ADHD
     Dosage: UNK
     Dates: start: 200603
  8. PROPOXYPHENE NAPSYLATE W/ACETAMINOPHENE [Concomitant]
     Dosage: UNK
     Dates: start: 20091013, end: 20091019
  9. CIPROFLOXACIN [Concomitant]
     Dosage: UNK
     Dates: start: 20091013
  10. DEXTROAMPHETAMINE [Concomitant]
     Dosage: 20 mg, UNK
     Dates: start: 20090909, end: 20091021
  11. FLUVIRIN [Concomitant]
     Dosage: 5 ml, UNK
     Dates: start: 20090914
  12. AMOXICILLIN [Concomitant]
     Dosage: 500 mg, UNK
     Route: 048
     Dates: start: 20091001
  13. AMOXICILLIN [Concomitant]
     Dosage: 50 mg, TID
     Route: 048
     Dates: start: 20090720, end: 20091001
  14. PROMETHAZINE [Concomitant]
     Indication: NAUSEA
     Dosage: 25 mg, q 6hrs.
     Route: 048
     Dates: start: 20091002
  15. PROMETHAZINE [Concomitant]
     Indication: VOMITING
     Dosage: 25 mg, UNK
     Dates: start: 20091024
  16. ARISTOCORT [Concomitant]
     Indication: SORE THROAT
     Dosage: 40 mg, UNK
     Route: 030
     Dates: start: 20090720, end: 20091001
  17. CLARITIN [Concomitant]
     Dosage: 10 mg, UNK
     Route: 048
     Dates: start: 20090720
  18. DIFFERIN [Concomitant]
     Indication: ACNE
     Dosage: UNK
     Route: 061
     Dates: start: 20090727
  19. ROCEPHIN [Concomitant]
     Indication: PHARYNGITIS NOS
     Dosage: 1 g, UNK
     Route: 030
     Dates: start: 20091001
  20. ROCEPHIN [Concomitant]
     Indication: SORE THROAT
  21. NEXIUM [Concomitant]
     Dosage: Samples [nos]
     Route: 048
     Dates: start: 20091006
  22. DARVOCET [Concomitant]
  23. PHENERGAN [Concomitant]

REACTIONS (9)
  - Gallbladder disorder [None]
  - Cholelithiasis [None]
  - Cholecystitis chronic [None]
  - Pain [None]
  - Injury [None]
  - Emotional distress [None]
  - Anxiety [None]
  - General physical health deterioration [None]
  - Anhedonia [None]
